FAERS Safety Report 7680395-6 (Version None)
Quarter: 2011Q3

REPORT INFORMATION
  Report Type: 
  Country: None (occurrence: None)
  Receive Date: 20110812
  Receipt Date: 20110802
  Transmission Date: 20111222
  Serious: Yes (Other)
  Sender: FDA-Public Use
  Company Number: US-BAYER-2011-004939

PATIENT
  Age: 18 Year
  Sex: Female

DRUGS (3)
  1. PREDNISONE [Concomitant]
  2. AVELOX [Suspect]
     Indication: TONSILLITIS
     Dosage: 400 MG, UNK
     Route: 048
     Dates: start: 20101221, end: 20101230
  3. CEFUROXIME [Concomitant]
     Dosage: UNK
     Dates: start: 20101201

REACTIONS (1)
  - HAEMATOCHEZIA [None]
